FAERS Safety Report 6034631-2 (Version None)
Quarter: 2009Q1

REPORT INFORMATION
  Report Type: 
  Country: None (occurrence: None)
  Receive Date: 20090109
  Receipt Date: 20090109
  Transmission Date: 20090719
  Serious: Yes (Hospitalization, Disabling)
  Sender: FDA-Public Use
  Company Number: None

PATIENT
  Sex: Male

DRUGS (5)
  1. ZOMETA [Suspect]
     Indication: MULTIPLE MYELOMA
     Dosage: 4 MG MONTHLY IV  (DURATION: X 8 DOSES)
     Route: 042
     Dates: start: 20040101
  2. RADIATION THERAPY [Concomitant]
  3. CHEMOTHERAPY [Concomitant]
  4. ACTONEL [Concomitant]
  5. VELCADE [Concomitant]

REACTIONS (3)
  - BONE DISORDER [None]
  - FISTULA [None]
  - OSTEONECROSIS [None]
